FAERS Safety Report 7527052-4 (Version None)
Quarter: 2011Q2

REPORT INFORMATION
  Report Type: 
  Country: None (occurrence: None)
  Receive Date: 20110606
  Receipt Date: 20110523
  Transmission Date: 20111010
  Serious: Yes (Death)
  Sender: FDA-Public Use
  Company Number: JP-GENENTECH-319840

PATIENT
  Sex: Male

DRUGS (3)
  1. RINGER'S SOLUTION [Concomitant]
     Indication: PRODUCT USED FOR UNKNOWN INDICATION
     Dosage: 500 ML, UNK
     Dates: start: 20110512, end: 20110512
  2. RADICUT [Concomitant]
     Indication: PRODUCT USED FOR UNKNOWN INDICATION
     Dosage: 30 MG, UNK
     Dates: start: 20110512, end: 20110512
  3. ACTIVASE [Suspect]
     Indication: CEREBRAL INFARCTION
     Dosage: 24000 IU, SINGLE
     Route: 042
     Dates: start: 20110512, end: 20110512

REACTIONS (1)
  - CARDIAC TAMPONADE [None]
